FAERS Safety Report 12057022 (Version 4)
Quarter: 2016Q2

REPORT INFORMATION
  Report Type: Report from Study
  Country: IL (occurrence: IL)
  Receive Date: 20160209
  Receipt Date: 20160524
  Transmission Date: 20160815
  Serious: Yes (Death, Hospitalization, Other)
  Sender: FDA-Public Use
  Company Number: IL-ABBVIE-15P-082-1477003-00

PATIENT
  Age: 69 Year
  Sex: Female

DRUGS (11)
  1. CARDILOC [Concomitant]
     Active Substance: BISOPROLOL FUMARATE
     Indication: HYPERTENSION
     Route: 048
  2. PLAVIX [Concomitant]
     Active Substance: CLOPIDOGREL BISULFATE
     Indication: ANTICOAGULANT THERAPY
     Route: 048
  3. GLUCOMIN [Concomitant]
     Active Substance: METFORMIN HYDROCHLORIDE
     Indication: DIABETES MELLITUS
     Route: 048
  4. MONOCORD [Concomitant]
     Indication: HYPERTENSION
     Route: 048
  5. ATACAND [Concomitant]
     Active Substance: CANDESARTAN CILEXETIL
     Indication: HYPERTENSION
     Route: 048
  6. NOVOMIX [Concomitant]
     Active Substance: INSULIN ASPART
     Indication: DIABETES MELLITUS
     Dosage: 20 UNITS/ 16 UNITS
  7. NORMOPRESAN [Concomitant]
     Indication: HYPERTENSION
     Route: 048
  8. VIEKIRAX [Suspect]
     Active Substance: OMBITASVIR\PARITAPREVIR\RITONAVIR
     Indication: HEPATITIS C
     Route: 048
     Dates: start: 20150813, end: 20151012
  9. CADEX [Concomitant]
     Indication: HYPERTENSION
     Route: 048
  10. CONTROLOG [Concomitant]
     Indication: HYPERTENSION
     Route: 048
  11. EXVIERA [Suspect]
     Active Substance: DASABUVIR
     Indication: HEPATITIS C
     Route: 048
     Dates: start: 20150813, end: 20151012

REACTIONS (17)
  - Dyspnoea [Unknown]
  - Cardiac disorder [Unknown]
  - Hypotension [Unknown]
  - Akinesia [Fatal]
  - Pulmonary congestion [Unknown]
  - Hypopnoea [Unknown]
  - Multiple organ dysfunction syndrome [Fatal]
  - Troponin increased [Unknown]
  - Blood pressure increased [Unknown]
  - Haemoglobin decreased [Fatal]
  - Urosepsis [Fatal]
  - Asthenia [Unknown]
  - Anaemia [Unknown]
  - Acute myocardial infarction [Unknown]
  - Chest pain [Unknown]
  - Renal failure [Unknown]
  - Loss of consciousness [Unknown]

NARRATIVE: CASE EVENT DATE: 201509
